FAERS Safety Report 5714144-5 (Version None)
Quarter: 2008Q2

REPORT INFORMATION
  Report Type: 
  Country: None (occurrence: None)
  Receive Date: 20080423
  Receipt Date: 20080416
  Transmission Date: 20081010
  Serious: Yes (Other)
  Sender: FDA-Public Use
  Company Number: PHEH2004US10674

PATIENT
  Age: 58 Year
  Sex: Male
  Weight: 72.562 kg

DRUGS (23)
  1. ESTRADERM [Suspect]
     Indication: HORMONE REPLACEMENT THERAPY
     Dosage: 0.05 MG
     Route: 062
     Dates: start: 19900801, end: 19901101
  2. MPA [Suspect]
     Indication: HORMONE REPLACEMENT THERAPY
     Dosage: 10MG QD
     Dates: start: 19900831, end: 19900901
  3. PREMARIN [Suspect]
     Indication: HORMONE REPLACEMENT THERAPY
     Dosage: .625MG + 0.3MG
     Dates: start: 19901201, end: 19910201
  4. PREMARIN [Suspect]
     Dates: start: 19990810
  5. ESTRATEST H.S. [Suspect]
     Indication: HORMONE REPLACEMENT THERAPY
     Dosage: UNK, UNK
     Dates: start: 19910301, end: 19960801
  6. CYCRIN [Suspect]
     Indication: HORMONE REPLACEMENT THERAPY
     Dates: start: 19940201, end: 19940801
  7. PREMPRO [Suspect]
     Indication: HORMONE REPLACEMENT THERAPY
     Dosage: .625MG/2.5MG
     Dates: start: 19940201, end: 20000301
  8. PREMPRO [Suspect]
     Dosage: 0.625MG/5MG
     Dates: start: 19990810
  9. PROVERA [Suspect]
     Indication: HORMONE REPLACEMENT THERAPY
     Route: 062
     Dates: start: 19901201, end: 19960801
  10. ANDROID 5 [Suspect]
     Dosage: 10
     Dates: start: 19961231
  11. ANDROID 5 [Suspect]
     Dosage: 10
     Dates: start: 19970317
  12. ASPIRIN [Concomitant]
     Dosage: UNK  QD
     Dates: start: 19990101
  13. PROZAC [Concomitant]
     Indication: MENSTRUAL DISORDER
     Dosage: UNK QD
     Dates: start: 19930701, end: 19941001
  14. RITALIN [Concomitant]
     Indication: ATTENTION DEFICIT/HYPERACTIVITY DISORDER
     Dosage: 10-30MG QD
     Dates: start: 19930701, end: 19941001
  15. ADDERALL 10 [Concomitant]
     Indication: ATTENTION DEFICIT/HYPERACTIVITY DISORDER
     Dosage: UNK QD
     Dates: start: 19950501, end: 19951201
  16. EFFEXOR [Concomitant]
     Indication: ATTENTION DEFICIT/HYPERACTIVITY DISORDER
     Dosage: UNK QD
     Dates: start: 19940901
  17. LEVOX [Concomitant]
     Dates: start: 19950801, end: 19951201
  18. WELLBUTRIN [Concomitant]
     Indication: DEPRESSION
     Dates: start: 19960301, end: 19961001
  19. ZOLOFT [Concomitant]
     Indication: DEPRESSION
     Dosage: UNK QD
     Dates: start: 19970901, end: 20010601
  20. SERZONE [Concomitant]
     Indication: DEPRESSION
     Dosage: 150MG QD
     Dates: start: 19970801, end: 20010601
  21. GINKGO BILOBA [Concomitant]
  22. GINSENG [Concomitant]
  23. PROGESTERONE [Suspect]
     Dosage: 10 MG, QD
     Dates: start: 19900831

REACTIONS (37)
  - ANXIETY [None]
  - ARTHRALGIA [None]
  - BACK PAIN [None]
  - BREAST CANCER [None]
  - BREAST CANCER IN SITU [None]
  - BREAST CYST [None]
  - BREAST DYSPLASIA [None]
  - BREAST LUMP REMOVAL [None]
  - BREAST MASS [None]
  - BREAST NECROSIS [None]
  - CATARACT [None]
  - CATARACT OPERATION [None]
  - CHEMOTHERAPY [None]
  - DEAFNESS [None]
  - DEPRESSION [None]
  - DISTURBANCE IN ATTENTION [None]
  - DIVERTICULUM [None]
  - ENDOMETRIAL DISORDER [None]
  - FIBROCYSTIC BREAST DISEASE [None]
  - HOT FLUSH [None]
  - LYMPHADENECTOMY [None]
  - LYMPHADENOPATHY [None]
  - MACULOPATHY [None]
  - MEMORY IMPAIRMENT [None]
  - MUSCULOSKELETAL PAIN [None]
  - MYALGIA [None]
  - NIGHT SWEATS [None]
  - POSTERIOR CAPSULOTOMY [None]
  - RADIOTHERAPY [None]
  - SCOLIOSIS [None]
  - SEXUAL DYSFUNCTION [None]
  - SLEEP DISORDER [None]
  - SPINAL OSTEOARTHRITIS [None]
  - TENDONITIS [None]
  - UTERINE CERVICAL SQUAMOUS METAPLASIA [None]
  - UTERINE LEIOMYOMA [None]
  - VITRECTOMY [None]
